FAERS Safety Report 9340428 (Version 1)
Quarter: 2013Q2

REPORT INFORMATION
  Report Type: Spontaneous
  Country: ES (occurrence: None)
  Receive Date: 20130605
  Receipt Date: 20130605
  Transmission Date: 20140414
  Serious: Yes (Hospitalization)
  Sender: FDA-Public Use
  Company Number: 2013050090

PATIENT
  Age: 34 Year
  Sex: Female

DRUGS (6)
  1. ISODIUR [Suspect]
     Indication: HYPERTENSION
     Route: 048
     Dates: end: 20091218
  2. IXIARO [Suspect]
     Indication: HYPERTENSION
     Route: 048
     Dates: start: 20070607, end: 20091218
  3. LISINOPRIL (LISINOPRIL) [Suspect]
     Indication: HYPERTENSION
     Route: 048
     Dates: end: 20091218
  4. NOVORAPID FLEXPEN (INSULIN ASPART) [Concomitant]
  5. ZARATOR (ATORVASTATIN) [Concomitant]
  6. AMLPDIPINE (AMLODIPINE) [Concomitant]

REACTIONS (5)
  - Renal failure acute [None]
  - Drug interaction [None]
  - Nausea [None]
  - Vomiting [None]
  - Diarrhoea [None]
